FAERS Safety Report 23283597 (Version 1)
Quarter: 2023Q4

REPORT INFORMATION
  Report Type: Spontaneous
  Country: FR (occurrence: FR)
  Receive Date: 20231211
  Receipt Date: 20231211
  Transmission Date: 20240110
  Serious: Yes (Hospitalization)
  Sender: FDA-Public Use
  Company Number: None

PATIENT
  Age: 72 Year
  Sex: Male
  Weight: 130 kg

DRUGS (20)
  1. ACETAMINOPHEN [Suspect]
     Active Substance: ACETAMINOPHEN
     Indication: Pain
     Route: 042
     Dates: start: 20231102, end: 20231117
  2. FENTANYL [Suspect]
     Active Substance: FENTANYL\FENTANYL CITRATE
     Indication: Pain
     Dosage: 25 MICROGRAM?CUTANEOUS?ROA-20003000
     Dates: start: 20231108, end: 20231115
  3. FENTANYL [Suspect]
     Active Substance: FENTANYL\FENTANYL CITRATE
     Dosage: 12 MICROGRAM?CUTANEOUS?ROA-20003000
     Dates: start: 20231102, end: 20231108
  4. MORPHINE SULFATE [Suspect]
     Active Substance: MORPHINE SULFATE
     Indication: Pain
     Dosage: ROA-20053000?ORAL
     Dates: start: 20231102, end: 20231110
  5. MORPHINE SULFATE [Suspect]
     Active Substance: MORPHINE SULFATE
     Dates: start: 20231116, end: 20231117
  6. IRBESARTAN [Concomitant]
     Active Substance: IRBESARTAN
     Indication: Hypertension
     Dosage: ROA-20053000?ORAL
  7. NICARDIPINE HYDROCHLORIDE [Concomitant]
     Active Substance: NICARDIPINE HYDROCHLORIDE
     Indication: Hypertension
     Dosage: ROA-20053000?ORAL
  8. ENOXAPARIN SODIUM [Concomitant]
     Active Substance: ENOXAPARIN SODIUM
     Indication: Thrombosis prophylaxis
     Dosage: ROA-20066000?SC
  9. REPAGLINIDE [Concomitant]
     Active Substance: REPAGLINIDE
     Indication: Type 2 diabetes mellitus
     Dosage: ROA-20053000?ORAL
     Dates: end: 20231116
  10. TAHOR [Concomitant]
     Active Substance: ATORVASTATIN CALCIUM
     Indication: Disease risk factor
     Dosage: 10 MG?ORAL?ROA-20053000
     Dates: end: 20231117
  11. TAHOR [Concomitant]
     Active Substance: ATORVASTATIN CALCIUM
     Indication: Diabetic dyslipidaemia
  12. NEURONTIN [Concomitant]
     Active Substance: GABAPENTIN
     Indication: Product used for unknown indication
     Dosage: 100 MG?ORAL?ROA-20053000
     Dates: end: 20231114
  13. NEFOPAM HYDROCHLORIDE [Concomitant]
     Active Substance: NEFOPAM HYDROCHLORIDE
     Indication: Pain
     Dosage: ROA-20045000?INTRAVENOUS
     Dates: start: 20231117, end: 20231117
  14. NEFOPAM HYDROCHLORIDE [Concomitant]
     Active Substance: NEFOPAM HYDROCHLORIDE
     Dosage: ROA-20045000?INTRAVENOUS
     Dates: start: 20231102, end: 20231108
  15. ALFUZOSIN [Concomitant]
     Active Substance: ALFUZOSIN
     Indication: Benign prostatic hyperplasia
     Dosage: ROA-20053000?ORAL
  16. SPIRONOLACTONE [Concomitant]
     Active Substance: SPIRONOLACTONE
     Indication: Hypertension
  17. ARANESP [Concomitant]
     Active Substance: DARBEPOETIN ALFA
     Indication: Chronic kidney disease
     Dosage: 40 MG?SC?ROA-20066000
  18. COLCHIMAX, film-coated tablet [Concomitant]
     Indication: Gout
     Dosage: O.5 DOSAGE FORM?ORAL?ROA-20053000
     Dates: end: 20231107
  19. COLCHICINE [Concomitant]
     Active Substance: COLCHICINE
     Indication: Gout
     Dosage: O.5 DOSAGE FORM?ORAL?ROA-20053000
     Dates: start: 20231107, end: 20231114
  20. JANUVIA [Concomitant]
     Active Substance: SITAGLIPTIN PHOSPHATE
     Indication: Type 2 diabetes mellitus
     Dates: end: 20231114

REACTIONS (1)
  - Cholestasis [Recovered/Resolved]

NARRATIVE: CASE EVENT DATE: 20231117
